FAERS Safety Report 10525424 (Version 1)
Quarter: 2014Q4

REPORT INFORMATION
  Report Type: Spontaneous
  Country: JP (occurrence: None)
  Receive Date: 20141015
  Receipt Date: 20141015
  Transmission Date: 20150528
  Serious: Yes (Other)
  Sender: FDA-Public Use
  Company Number: JP-2014TEC0000002

PATIENT
  Age: 25 Week
  Sex: Female
  Weight: .6 kg

DRUGS (4)
  1. HEPARIN SODIUM. [Suspect]
     Active Substance: HEPARIN SODIUM
     Indication: CATHETER MANAGEMENT
     Route: 042
  2. INDOMETHACIN /00003801/ (INDOMETACIN) [Concomitant]
  3. HEPARIN SODIUM. [Suspect]
     Active Substance: HEPARIN SODIUM
     Indication: DILATATION ATRIAL
     Route: 042
  4. HEPARIN SODIUM. [Suspect]
     Active Substance: HEPARIN SODIUM
     Indication: CENTRAL VENOUS CATHETERISATION
     Route: 042

REACTIONS (1)
  - Hyperkalaemia [None]
